FAERS Safety Report 23927627 (Version 1)
Quarter: 2024Q2

REPORT INFORMATION
  Report Type: Spontaneous
  Country: DE (occurrence: DE)
  Receive Date: 20240531
  Receipt Date: 20240531
  Transmission Date: 20240716
  Serious: Yes (Hospitalization, Other)
  Sender: FDA-Public Use
  Company Number: DE-GLAXOSMITHKLINE-DE2024GSK067317

PATIENT

DRUGS (6)
  1. LAMOTRIGINE [Suspect]
     Active Substance: LAMOTRIGINE
     Indication: Generalised tonic-clonic seizure
     Dosage: 175 MG, QD
     Route: 048
  2. LAMOTRIGINE [Suspect]
     Active Substance: LAMOTRIGINE
     Indication: Partial seizures
     Dosage: 200 MG, QD
     Route: 048
  3. CLOBAZAM [Concomitant]
     Active Substance: CLOBAZAM
     Indication: Generalised tonic-clonic seizure
     Dosage: UNK
  4. CLOBAZAM [Concomitant]
     Active Substance: CLOBAZAM
     Indication: Partial seizures
  5. CEFOTAXIME [Concomitant]
     Active Substance: CEFOTAXIME SODIUM
     Indication: Meningitis
     Dosage: UNK
  6. ACYCLOVIR [Concomitant]
     Active Substance: ACYCLOVIR
     Indication: Meningitis
     Dosage: UNK

REACTIONS (19)
  - Drug reaction with eosinophilia and systemic symptoms [Recovered/Resolved]
  - Acute kidney injury [Recovering/Resolving]
  - Tubulointerstitial nephritis [Recovering/Resolving]
  - Renal tubular necrosis [Recovering/Resolving]
  - Condition aggravated [Recovered/Resolved]
  - Pyrexia [Recovered/Resolved]
  - Rash [Recovered/Resolved]
  - Apathy [Recovered/Resolved]
  - Rash maculo-papular [Recovered/Resolved]
  - Hyponatraemia [Recovering/Resolving]
  - Lymphopenia [Recovering/Resolving]
  - Pericardial effusion [Unknown]
  - Generalised oedema [Recovered/Resolved]
  - Skin exfoliation [Recovered/Resolved]
  - Proteinuria [Recovering/Resolving]
  - Renal failure [Recovering/Resolving]
  - Drug level increased [Unknown]
  - Overdose [Unknown]
  - Treatment noncompliance [Unknown]
